FAERS Safety Report 13124621 (Version 1)
Quarter: 2017Q1

REPORT INFORMATION
  Report Type: Report from Study
  Country: US (occurrence: US)
  Receive Date: 20170118
  Receipt Date: 20170118
  Transmission Date: 20170428
  Serious: No
  Sender: FDA-Public Use
  Company Number: US-AMGEN-USASL2017005829

PATIENT
  Age: 39 Year
  Sex: Male

DRUGS (2)
  1. ZYRETIC [Concomitant]
     Dosage: UNK
  2. ENBREL [Suspect]
     Active Substance: ETANERCEPT
     Indication: RHEUMATOID ARTHRITIS
     Dosage: 50 MG, QWK
     Route: 065
     Dates: start: 20161213

REACTIONS (4)
  - Pruritus [Unknown]
  - Injection site induration [Unknown]
  - Sleep disorder [Unknown]
  - Injection site pain [Unknown]
